FAERS Safety Report 9684616 (Version 2)
Quarter: 2013Q4

REPORT INFORMATION
  Report Type: Spontaneous
  Country: US (occurrence: US)
  Receive Date: 20131112
  Receipt Date: 20131213
  Transmission Date: 20140711
  Serious: Yes (Death, Other)
  Sender: FDA-Public Use
  Company Number: US-GILEAD-2013-0087337

PATIENT
  Age: 22 Year
  Sex: Male

DRUGS (2)
  1. CAYSTON [Suspect]
     Indication: INFECTIVE PULMONARY EXACERBATION OF CYSTIC FIBROSIS
     Dosage: 75 MG, TID
     Route: 055
     Dates: start: 201012, end: 20101222
  2. CAYSTON [Suspect]
     Indication: PSEUDOMONAS INFECTION

REACTIONS (1)
  - Respiratory failure [Fatal]
